FAERS Safety Report 7184383-8 (Version None)
Quarter: 2010Q4

REPORT INFORMATION
  Report Type: 
  Country: None (occurrence: None)
  Receive Date: 20101222
  Receipt Date: 20100322
  Transmission Date: 20110411
  Serious: No
  Sender: FDA-Public Use
  Company Number: US-PFIZER INC-2010062915

PATIENT
  Sex: Female
  Weight: 75 kg

DRUGS (7)
  1. DIFLUCAN [Suspect]
     Dosage: UNK
     Dates: start: 20100301
  2. CLINDAMYCIN PHOSPHATE [Suspect]
     Dosage: UNK
  3. PREMARIN [Suspect]
     Indication: ATROPHIC VULVOVAGINITIS
     Dosage: 0.625 MG, TWICE A WEEK
     Route: 067
     Dates: start: 20091001, end: 20100301
  4. VERAPAMIL [Concomitant]
     Indication: CARDIAC DISORDER
     Dosage: UNK
  5. ATACAND [Concomitant]
     Indication: CARDIAC DISORDER
     Dosage: UNK
  6. LEVOTHYROXINE [Concomitant]
     Dosage: UNK
  7. GABAPENTIN [Concomitant]
     Dosage: UNK

REACTIONS (3)
  - BURNING SENSATION [None]
  - FUNGAL INFECTION [None]
  - VAGINAL DISCHARGE [None]
